FAERS Safety Report 22053778 (Version 1)
Quarter: 2023Q1

REPORT INFORMATION
  Report Type: Spontaneous
  Country: US (occurrence: US)
  Receive Date: 20230302
  Receipt Date: 20230302
  Transmission Date: 20230418
  Serious: No
  Sender: FDA-Public Use
  Company Number: US-BRISTOL-MYERS SQUIBB COMPANY-2023-030097

PATIENT
  Age: 83 Year
  Sex: Female
  Weight: 131.54 kg

DRUGS (5)
  1. ELIQUIS [Suspect]
     Active Substance: APIXABAN
     Indication: Cerebrovascular accident prophylaxis
  2. ELIQUIS [Suspect]
     Active Substance: APIXABAN
  3. FERROUS SULFATE [Concomitant]
     Active Substance: FERROUS SULFATE
     Indication: Product used for unknown indication
  4. IRON [Concomitant]
     Active Substance: IRON
     Indication: Product used for unknown indication
  5. VITAMIN D NOS [Concomitant]
     Active Substance: VITAMIN D NOS
     Indication: Product used for unknown indication

REACTIONS (3)
  - Epistaxis [Recovering/Resolving]
  - Coronavirus infection [Unknown]
  - Intentional product use issue [Unknown]

NARRATIVE: CASE EVENT DATE: 20230227
